FAERS Safety Report 6708864-3 (Version None)
Quarter: 2010Q2

REPORT INFORMATION
  Report Type: 
  Country: None (occurrence: None)
  Receive Date: 20100504
  Receipt Date: 20100420
  Transmission Date: 20101027
  Serious: No
  Sender: FDA-Public Use
  Company Number: US-JNJFOC-20100405747

PATIENT
  Sex: Female
  Weight: 79.38 kg

DRUGS (4)
  1. FENTANYL CITRATE [Suspect]
     Indication: PAIN
     Route: 062
     Dates: start: 20060101, end: 20100401
  2. FENTANYL CITRATE [Suspect]
     Dosage: NDC# 0781-724455
     Route: 062
     Dates: start: 20100401
  3. XANAX [Concomitant]
     Indication: ANXIETY DISORDER
     Route: 048
     Dates: start: 19670101
  4. ZOLOFT [Concomitant]
     Indication: DRUG USE FOR UNKNOWN INDICATION
     Route: 048
     Dates: start: 20000101

REACTIONS (5)
  - APPLICATION SITE SCAR [None]
  - APPLICATION SITE URTICARIA [None]
  - APPLICATION SITE VESICLES [None]
  - DRUG ADMINISTERED AT INAPPROPRIATE SITE [None]
  - DRUG INEFFECTIVE [None]
